FAERS Safety Report 6755534-1 (Version None)
Quarter: 2010Q2

REPORT INFORMATION
  Report Type: 
  Country: None (occurrence: None)
  Receive Date: 20100604
  Receipt Date: 20100531
  Transmission Date: 20101027
  Serious: Yes (Death, Hospitalization)
  Sender: FDA-Public Use
  Company Number: DE-ASTRAZENECA-2010SE24941

PATIENT
  Age: 65 Year
  Sex: Female

DRUGS (1)
  1. GEFITINIB [Suspect]
     Route: 048

REACTIONS (4)
  - DYSPNOEA EXERTIONAL [None]
  - GENERAL PHYSICAL HEALTH DETERIORATION [None]
  - PNEUMONITIS [None]
  - RESPIRATORY FAILURE [None]
